FAERS Safety Report 4623638-5 (Version None)
Quarter: 2005Q2

REPORT INFORMATION
  Report Type: 
  Country: None (occurrence: None)
  Receive Date: 20050325
  Receipt Date: 20041210
  Transmission Date: 20051028
  Serious: No
  Sender: FDA-Public Use
  Company Number: USA041080777

PATIENT
  Age: 81 Year
  Sex: Female
  Weight: 64 kg

DRUGS (4)
  1. FORTEO [Suspect]
     Indication: BONE DISORDER
     Dosage: 20 UG/ 1 DAY
     Dates: start: 20040907
  2. CALCIUM WITH VITAMIN D [Concomitant]
  3. VITAMINS [Concomitant]
  4. ASPIRIN [Concomitant]

REACTIONS (5)
  - ANXIETY [None]
  - FEELING ABNORMAL [None]
  - INJECTION SITE HAEMORRHAGE [None]
  - JOINT SWELLING [None]
  - NAUSEA [None]
